FAERS Safety Report 10461398 (Version 1)
Quarter: 2014Q3

REPORT INFORMATION
  Report Type: Spontaneous
  Country: US (occurrence: None)
  Receive Date: 20140915
  Receipt Date: 20140915
  Transmission Date: 20150326
  Serious: Yes (Other)
  Sender: FDA-Public Use
  Company Number: ADR-2014-01647

PATIENT
  Age: 21 Year
  Sex: Male

DRUGS (1)
  1. LIORESAL [Suspect]
     Active Substance: BACLOFEN
     Indication: MUSCLE SPASTICITY

REACTIONS (6)
  - Fall [None]
  - Muscle spasticity [None]
  - Condition aggravated [None]
  - Implant site pain [None]
  - Pain [None]
  - Complex regional pain syndrome [None]

NARRATIVE: CASE EVENT DATE: 20140725
